FAERS Safety Report 21359449 (Version 1)
Quarter: 2022Q3

REPORT INFORMATION
  Report Type: Report from Study
  Country: DE (occurrence: None)
  Receive Date: 20220921
  Receipt Date: 20220921
  Transmission Date: 20221027
  Serious: Yes (Hospitalization)
  Sender: FDA-Public Use
  Company Number: DE-ROCHE-3181573

PATIENT
  Age: 32 Year
  Sex: Female
  Weight: 52 kg

DRUGS (11)
  1. ATEZOLIZUMAB [Suspect]
     Active Substance: ATEZOLIZUMAB
     Indication: Triple negative breast cancer
     Dosage: DATE OF LAST DOSE PRIOR TO SAE: 10/AUG/2022
     Route: 042
     Dates: start: 20220607
  2. PACLITAXEL [Suspect]
     Active Substance: PACLITAXEL
     Indication: Triple negative breast cancer
     Dosage: DATE OF LAST DOSE PRIOR TO SAE: 17/AUG/2022
     Route: 042
     Dates: start: 20220607
  3. CARBOPLATIN [Suspect]
     Active Substance: CARBOPLATIN
     Indication: Triple negative breast cancer
     Dosage: DATE OF LAST DOSE PRIOR TO SAE: 17/AUG/2022
     Route: 042
     Dates: start: 20220607
  4. ONDANSETRON [Concomitant]
     Active Substance: ONDANSETRON
     Dates: start: 20220608
  5. DIMETHINDENE [Concomitant]
     Active Substance: DIMETHINDENE
     Dates: start: 20220607
  6. DEXAMETHASONE [Concomitant]
     Active Substance: DEXAMETHASONE
     Dates: start: 20220607
  7. MELATONIN [Concomitant]
     Active Substance: MELATONIN
     Dates: start: 20220614
  8. IBUPROFEN [Concomitant]
     Active Substance: IBUPROFEN
     Dosage: NA MG AS NEEDED
     Dates: start: 20220731
  9. FILGRASTIM [Concomitant]
     Active Substance: FILGRASTIM
     Dosage: 30 I.E. WEEKLY
     Dates: start: 20220730
  10. INNOHEP [Concomitant]
     Active Substance: TINZAPARIN SODIUM
     Dosage: 3500 IE ONCE DAILY
     Dates: start: 20220818, end: 20220819
  11. ZOLPIDEM [Concomitant]
     Active Substance: ZOLPIDEM TARTRATE
     Dates: start: 20220818, end: 20220819

REACTIONS (1)
  - Pyrexia [Recovered/Resolved]

NARRATIVE: CASE EVENT DATE: 20220818
